FAERS Safety Report 7498806-8 (Version None)
Quarter: 2011Q2

REPORT INFORMATION
  Report Type: 
  Country: None (occurrence: None)
  Receive Date: 20110524
  Receipt Date: 20110519
  Transmission Date: 20111010
  Serious: Yes (Other)
  Sender: FDA-Public Use
  Company Number: GB-AMGEN-GBRSP2011017891

PATIENT
  Age: 45 Year
  Sex: Male
  Weight: 120 kg

DRUGS (2)
  1. AZATHIOPRINE [Concomitant]
  2. NPLATE [Suspect]
     Indication: IDIOPATHIC THROMBOCYTOPENIC PURPURA
     Dosage: 10 A?G/KG, UNK
     Dates: start: 20100101

REACTIONS (1)
  - THERAPEUTIC RESPONSE DECREASED [None]
